FAERS Safety Report 6924073-7 (Version None)
Quarter: 2010Q3

REPORT INFORMATION
  Report Type: 
  Country: None (occurrence: None)
  Receive Date: 20100813
  Receipt Date: 20100803
  Transmission Date: 20110219
  Serious: Yes (Other)
  Sender: FDA-Public Use
  Company Number: US-WYE-H16692610

PATIENT
  Sex: Female
  Weight: 96.7 kg

DRUGS (12)
  1. EFFEXOR [Interacting]
     Indication: DEPRESSION
  2. SECTRAL [Interacting]
     Indication: TACHYCARDIA
     Dosage: UNKNOWN
  3. BENADRYL [Concomitant]
     Indication: COUGH
     Dosage: UNKNOWN DOSE AS NEEDED
  4. JANUVIA [Concomitant]
     Indication: DIABETES MELLITUS
     Route: 048
  5. LYRICA [Concomitant]
     Indication: FIBROMYALGIA
     Dosage: UNKNOWN
     Dates: start: 20100301, end: 20100401
  6. VENTOLIN [Concomitant]
     Indication: ASTHMA
     Dosage: 90 MCG AS NEEDED
  7. NORFLEX [Concomitant]
     Indication: FIBROMYALGIA
  8. BENICAR HCT [Concomitant]
     Indication: HYPERTENSION
     Dosage: 40/25 MG  TABLETS DAILY
     Route: 048
  9. ZANTAC [Concomitant]
     Indication: GASTRIC DISORDER
     Dosage: 150 MG AS NEEDED
     Route: 048
  10. ZYRTEC [Concomitant]
     Dosage: UNKNOWN
     Route: 048
  11. NEURONTIN [Suspect]
     Indication: FIBROMYALGIA
     Route: 048
     Dates: start: 20100401, end: 20100101
  12. LEVOTHYROXINE [Concomitant]
     Indication: HYPOTHYROIDISM
     Route: 048

REACTIONS (7)
  - DRUG INTERACTION [None]
  - DYSPNOEA [None]
  - ERYTHEMA [None]
  - FACE OEDEMA [None]
  - HYPERSENSITIVITY [None]
  - OBSTRUCTIVE AIRWAYS DISORDER [None]
  - RASH [None]
